FAERS Safety Report 25410695 (Version 1)
Quarter: 2025Q2

REPORT INFORMATION
  Report Type: Spontaneous
  Country: US (occurrence: US)
  Receive Date: 20250609
  Receipt Date: 20250609
  Transmission Date: 20250717
  Serious: No
  Sender: NAARI PHARMA
  Company Number: US-NAARI PTE LIMITED-2024NP000105

PATIENT

DRUGS (3)
  1. LEVONORGESTREL [Interacting]
     Active Substance: LEVONORGESTREL
     Indication: Product used for unknown indication
     Route: 065
  2. RIFABUTIN [Interacting]
     Active Substance: RIFABUTIN
     Indication: Diabetic foot
     Route: 065
  3. RIFABUTIN [Interacting]
     Active Substance: RIFABUTIN
     Indication: Osteomyelitis

REACTIONS (1)
  - Drug interaction [Unknown]
